FAERS Safety Report 16705622 (Version 2)
Quarter: 2019Q3

REPORT INFORMATION
  Report Type: Report from Study
  Country: LB (occurrence: LB)
  Receive Date: 20190815
  Receipt Date: 20190829
  Transmission Date: 20191004
  Serious: Yes (Hospitalization, Other)
  Sender: FDA-Public Use
  Company Number: LB-ROCHE-2371222

PATIENT
  Age: 44 Year
  Sex: Female

DRUGS (1)
  1. XOLAIR [Suspect]
     Active Substance: OMALIZUMAB
     Indication: URTICARIA
     Route: 058
     Dates: start: 20190731, end: 20190731

REACTIONS (6)
  - Type I hypersensitivity [Unknown]
  - Fatigue [Recovered/Resolved]
  - Anaphylactic reaction [Unknown]
  - Dyspnoea [Recovering/Resolving]
  - Oxygen saturation decreased [Recovered/Resolved]
  - Dizziness [Unknown]

NARRATIVE: CASE EVENT DATE: 20190731
